FAERS Safety Report 6209440-1 (Version None)
Quarter: 2009Q2

REPORT INFORMATION
  Report Type: 
  Country: None (occurrence: None)
  Receive Date: 20090601
  Receipt Date: 20090518
  Transmission Date: 20091009
  Serious: Yes (Disabling, Other)
  Sender: FDA-Public Use
  Company Number: US-ROCHE-630829

PATIENT
  Sex: Male
  Weight: 78.9 kg

DRUGS (5)
  1. CAPECITABINE [Suspect]
     Dosage: DOSA: 4/500 MG
     Route: 048
     Dates: start: 20090406, end: 20090428
  2. COLACE [Concomitant]
  3. MULTI-VITAMIN [Concomitant]
  4. NEXIUM [Concomitant]
  5. OXYCODONE [Concomitant]

REACTIONS (4)
  - ABDOMINAL PAIN [None]
  - CHROMATURIA [None]
  - LIVER DISORDER [None]
  - OCULAR ICTERUS [None]
